FAERS Safety Report 7962512-3 (Version None)
Quarter: 2011Q4

REPORT INFORMATION
  Report Type: 
  Country: None (occurrence: None)
  Receive Date: 20111207
  Receipt Date: 20111130
  Transmission Date: 20120403
  Serious: Yes (Other)
  Sender: FDA-Public Use
  Company Number: US-GLAXOSMITHKLINE-A0956480A

PATIENT
  Age: 35 Year
  Sex: Female

DRUGS (2)
  1. LEXAPRO [Concomitant]
  2. LAMICTAL [Suspect]
     Indication: BIPOLAR DISORDER
     Dosage: 25MG PER DAY
     Route: 065
     Dates: start: 20111114, end: 20111128

REACTIONS (8)
  - DIZZINESS [None]
  - RASH [None]
  - RASH ERYTHEMATOUS [None]
  - LOCAL SWELLING [None]
  - EYE SWELLING [None]
  - LYMPHADENOPATHY [None]
  - TONGUE DISORDER [None]
  - PRURITUS [None]
